FAERS Safety Report 23449205 (Version 1)
Quarter: 2024Q1

REPORT INFORMATION
  Report Type: Spontaneous
  Country: US (occurrence: US)
  Receive Date: 20240129
  Receipt Date: 20240129
  Transmission Date: 20240410
  Serious: No
  Sender: FDA-Public Use
  Company Number: US-GSK-US2024008807

PATIENT
  Age: 78 Year
  Sex: Male

DRUGS (1)
  1. OJJAARA [Suspect]
     Active Substance: MOMELOTINIB DIHYDROCHLORIDE MONOHYDRATE
     Indication: Myelofibrosis
     Dosage: 200 MG
     Route: 048
     Dates: start: 20231208

REACTIONS (4)
  - Renal disorder [Not Recovered/Not Resolved]
  - Cardiac disorder [Not Recovered/Not Resolved]
  - Product dose omission issue [Unknown]
  - Product use issue [Unknown]

NARRATIVE: CASE EVENT DATE: 20240111
